FAERS Safety Report 18227590 (Version 1)
Quarter: 2020Q3

REPORT INFORMATION
  Report Type: Spontaneous
  Country: US (occurrence: US)
  Receive Date: 20200903
  Receipt Date: 20200903
  Transmission Date: 20201103
  Serious: No
  Sender: FDA-Public Use
  Company Number: US-CIPLA LTD.-2019US08130

PATIENT

DRUGS (5)
  1. CARVEDILOL. [Concomitant]
     Active Substance: CARVEDILOL
     Indication: HYPERTENSION
     Dosage: 3.125, BID
     Route: 065
  2. PANTOPRAZOLE [Concomitant]
     Active Substance: PANTOPRAZOLE
     Indication: GASTRIC ULCER
     Dosage: 40 MILLIGRAM
     Route: 065
  3. WARFARIN [Concomitant]
     Active Substance: WARFARIN
     Indication: HYPERTENSION
     Dosage: 1 MILLIGRAM, QD
     Route: 065
  4. ALENDRONATE [Suspect]
     Active Substance: ALENDRONATE SODIUM
     Indication: BONE DISORDER
     Dosage: 70 MILLIGRAM ONCE A WEEK AT NIGHT
     Route: 048
     Dates: start: 2018
  5. LOSARTAN. [Concomitant]
     Active Substance: LOSARTAN
     Indication: HYPERTENSION
     Dosage: 100 MILLIGRAM PER DAY
     Route: 065

REACTIONS (12)
  - Arthralgia [Not Recovered/Not Resolved]
  - Diarrhoea [Not Recovered/Not Resolved]
  - Depression [Not Recovered/Not Resolved]
  - Abdominal discomfort [Recovered/Resolved]
  - Chest pain [Not Recovered/Not Resolved]
  - Gait disturbance [Unknown]
  - Dyspepsia [Unknown]
  - Apathy [Not Recovered/Not Resolved]
  - Bone pain [Not Recovered/Not Resolved]
  - Inappropriate schedule of product administration [Unknown]
  - Abdominal pain upper [Unknown]
  - Constipation [Not Recovered/Not Resolved]

NARRATIVE: CASE EVENT DATE: 2018
